FAERS Safety Report 8312388-X (Version None)
Quarter: 2012Q2

REPORT INFORMATION
  Report Type: 
  Country: None (occurrence: None)
  Receive Date: 20120425
  Receipt Date: 20120419
  Transmission Date: 20120825
  Serious: Yes (Hospitalization)
  Sender: FDA-Public Use
  Company Number: US-AMGEN-USASP2011065869

PATIENT
  Age: 51 Year
  Sex: Female
  Weight: 105.22 kg

DRUGS (2)
  1. ENBREL [Suspect]
     Indication: RHEUMATOID ARTHRITIS
     Dosage: 50 MG, QWK
     Dates: start: 20041204
  2. ARAVA [Concomitant]
     Dosage: 20 MG, QD

REACTIONS (7)
  - DIZZINESS [None]
  - COUGH [None]
  - HYPERTENSION [None]
  - SYNOVITIS [None]
  - PYREXIA [None]
  - OROPHARYNGEAL PAIN [None]
  - RHEUMATOID ARTHRITIS [None]
